FAERS Safety Report 24981040 (Version 1)
Quarter: 2025Q1

REPORT INFORMATION
  Report Type: Spontaneous
  Country: US (occurrence: US)
  Receive Date: 20250218
  Receipt Date: 20250218
  Transmission Date: 20250409
  Serious: No
  Sender: MERZ
  Company Number: US-MERZ PHARMACEUTICALS, LLC-ACO_175601_2023

PATIENT
  Sex: Male

DRUGS (4)
  1. INBRIJA [Suspect]
     Active Substance: LEVODOPA
     Indication: Parkinson^s disease
     Dates: start: 20200901
  2. INBRIJA [Suspect]
     Active Substance: LEVODOPA
     Indication: On and off phenomenon
     Dates: start: 2021
  3. ONGENTYS [Concomitant]
     Active Substance: OPICAPONE
     Indication: Product used for unknown indication
     Route: 065
  4. RYTARY [Concomitant]
     Active Substance: CARBIDOPA\LEVODOPA
     Indication: Product used for unknown indication
     Route: 065

REACTIONS (5)
  - Disease progression [Unknown]
  - Visual impairment [Unknown]
  - Cataract [Unknown]
  - Parkinson^s disease [Unknown]
  - Fall [Unknown]
